FAERS Safety Report 16375980 (Version 3)
Quarter: 2019Q2

REPORT INFORMATION
  Report Type: Report from Study
  Country: US (occurrence: US)
  Receive Date: 20190531
  Receipt Date: 20190626
  Transmission Date: 20190711
  Serious: Yes (Other)
  Sender: FDA-Public Use
  Company Number: US-ROCHE-2329296

PATIENT
  Age: 29 Year
  Sex: Male
  Weight: 55.4 kg

DRUGS (10)
  1. MOBIC [Concomitant]
     Active Substance: MELOXICAM
  2. BENADRYL [Concomitant]
     Active Substance: DIPHENHYDRAMINE HYDROCHLORIDE
  3. LIDOCAINE. [Concomitant]
     Active Substance: LIDOCAINE
     Route: 061
  4. OXYCODONE HYDROCHLORIDE. [Concomitant]
     Active Substance: OXYCODONE HYDROCHLORIDE
  5. TYLENOL [Concomitant]
     Active Substance: ACETAMINOPHEN
  6. HEMLIBRA [Suspect]
     Active Substance: EMICIZUMAB-KXWH
     Dosage: 60 MG/0.4ML VIAL
     Route: 058
     Dates: start: 20160921
  7. HEMLIBRA [Suspect]
     Active Substance: EMICIZUMAB-KXWH
     Indication: FACTOR VIII DEFICIENCY
     Dosage: 105 MG/0.7M L VIAL
     Route: 058
     Dates: start: 20160921
  8. REMERON [Concomitant]
     Active Substance: MIRTAZAPINE
  9. SUBOXONE [Concomitant]
     Active Substance: BUPRENORPHINE HYDROCHLORIDE\NALOXONE HYDROCHLORIDE
  10. NOVOSEVEN [Concomitant]
     Active Substance: COAGULATION FACTOR VIIA RECOMBINANT HUMAN
     Route: 042

REACTIONS (1)
  - Haemorrhage [Unknown]

NARRATIVE: CASE EVENT DATE: 20190527
